FAERS Safety Report 8879816 (Version 1)
Quarter: 2012Q4

REPORT INFORMATION
  Report Type: 
  Country: FR (occurrence: FR)
  Receive Date: 20121031
  Receipt Date: 20121031
  Transmission Date: 20130627
  Serious: Yes (Other)
  Sender: FDA-Public Use
  Company Number: FR-ABBOTT-12P-056-1000839-00

PATIENT
  Sex: Female

DRUGS (1)
  1. LEVOTHYROXINE [Suspect]
     Indication: MATERNAL EXPOSURE TIMING UNSPECIFIED
     Route: 064

REACTIONS (10)
  - Failure to thrive [Recovered/Resolved]
  - Growth hormone deficiency [Unknown]
  - Body height below normal [Unknown]
  - Growth retardation [Unknown]
  - Foetal exposure during pregnancy [Unknown]
  - Fatigue [Unknown]
  - Constipation [Unknown]
  - Dry skin [Unknown]
  - Yellow skin [Unknown]
  - Abdominal distension [Unknown]
